FAERS Safety Report 14373187 (Version 2)
Quarter: 2018Q1

REPORT INFORMATION
  Report Type: Spontaneous
  Country: US (occurrence: US)
  Receive Date: 20180110
  Receipt Date: 20180117
  Transmission Date: 20180509
  Serious: No
  Sender: FDA-Public Use
  Company Number: US-MYLANLABS-2017M1078755

PATIENT
  Sex: Male

DRUGS (1)
  1. SODIUM CROMOGLICATE [Suspect]
     Active Substance: CROMOLYN SODIUM
     Dosage: UNK

REACTIONS (3)
  - Abdominal pain upper [Unknown]
  - Headache [Unknown]
  - Nausea [Unknown]
